FAERS Safety Report 4655364-0 (Version None)
Quarter: 2005Q2

REPORT INFORMATION
  Report Type: 
  Country: None (occurrence: None)
  Receive Date: 20050505
  Receipt Date: 20050420
  Transmission Date: 20051028
  Serious: Yes (Other)
  Sender: FDA-Public Use
  Company Number: USA050289736

PATIENT
  Age: 56 Year
  Sex: Female
  Weight: 65 kg

DRUGS (2)
  1. FORTEO [Suspect]
     Indication: OSTEOPOROSIS
     Dosage: 20 UG DAY
     Dates: start: 20040501, end: 20040726
  2. ZOMETA [Concomitant]

REACTIONS (12)
  - ANAEMIA OF CHRONIC DISEASE [None]
  - BONE PAIN [None]
  - CARBOHYDRATE ANTIGEN 15-3 INCREASED [None]
  - CHEST WALL PAIN [None]
  - CONSTIPATION [None]
  - DRUG EFFECT DECREASED [None]
  - FIBROMYALGIA [None]
  - IRON DEFICIENCY [None]
  - MEAN CELL VOLUME DECREASED [None]
  - MUSCLE SPASMS [None]
  - MYALGIA [None]
  - OEDEMA PERIPHERAL [None]
